FAERS Safety Report 9395715 (Version 1)
Quarter: 2013Q3

REPORT INFORMATION
  Report Type: Spontaneous
  Country: US (occurrence: US)
  Receive Date: 20130711
  Receipt Date: 20130711
  Transmission Date: 20140515
  Serious: Yes (Death)
  Sender: FDA-Public Use
  Company Number: US-BRISTOL-MYERS SQUIBB COMPANY-18960401

PATIENT
  Age: 81 Year
  Sex: Male

DRUGS (2)
  1. NULOJIX [Suspect]
  2. PROGRAF [Suspect]

REACTIONS (1)
  - Sepsis [Fatal]
